FAERS Safety Report 7315670-8 (Version None)
Quarter: 2011Q1

REPORT INFORMATION
  Report Type: 
  Country: None (occurrence: None)
  Receive Date: 20110119
  Receipt Date: 20100614
  Transmission Date: 20110831
  Serious: No
  Sender: FDA-Public Use
  Company Number: A-US2010-36490

PATIENT
  Age: 83 Year
  Sex: Male

DRUGS (23)
  1. NASONEX [Concomitant]
  2. SYNTHROID [Concomitant]
  3. PLAVIX [Concomitant]
  4. ADVAIR DISKUS 100/50 [Concomitant]
  5. HYTRIN [Concomitant]
  6. POTASSIUM CHLORIDE [Concomitant]
  7. ASCORBIC ACID [Concomitant]
  8. LASIX [Concomitant]
  9. ASPIRIN (ACETYLSALICYLIC ACID) [Concomitant]
  10. CRESTOR [Concomitant]
  11. TRACLEER [Suspect]
     Indication: PULMONARY ARTERIAL HYPERTENSION
     Dosage: 62.5 MG, BID, ORAL
     Route: 048
     Dates: start: 20100427
  12. AVELOX [Concomitant]
  13. STARLIX [Concomitant]
  14. PREVACID [Concomitant]
  15. CALCIUM CITRATE (CALCIUM CITRATE) [Concomitant]
  16. ALLEGRA [Concomitant]
  17. IMDUR [Concomitant]
  18. THERAGRAN (VITAMINS NOS) [Concomitant]
  19. ULTRACET [Concomitant]
  20. ATROVENT [Concomitant]
  21. GLUCOSAMINE (MINERALS NOS, SALMON OIL, VITAMINS NOS) [Concomitant]
  22. MOBIC [Concomitant]
  23. ALBUTEROL (SALBUTAMOL SULFATE) [Concomitant]

REACTIONS (3)
  - PAIN IN EXTREMITY [None]
  - OEDEMA PERIPHERAL [None]
  - PNEUMONIA [None]
